FAERS Safety Report 8196298-7 (Version None)
Quarter: 2012Q1

REPORT INFORMATION
  Report Type: 
  Country: None (occurrence: None)
  Receive Date: 20120309
  Receipt Date: 20120306
  Transmission Date: 20120608
  Serious: No
  Sender: FDA-Public Use
  Company Number: US-PFIZER INC-2012061241

PATIENT

DRUGS (1)
  1. PROTONIX [Suspect]
     Dosage: 40 MG, UNK

REACTIONS (1)
  - DYSPNOEA [None]
